FAERS Safety Report 17266213 (Version 2)
Quarter: 2020Q1

REPORT INFORMATION
  Report Type: Report from Study
  Country: AU (occurrence: AU)
  Receive Date: 20200114
  Receipt Date: 20200121
  Transmission Date: 20200409
  Serious: Yes (Hospitalization)
  Sender: FDA-Public Use
  Company Number: AU-ROCHE-2517653

PATIENT
  Age: 67 Year
  Sex: Male

DRUGS (7)
  1. MAGNESIUM [Concomitant]
     Active Substance: MAGNESIUM
     Indication: NUTRITIONAL SUPPLEMENTATION
     Dosage: TOTAL DOSE: 1 TABLET?MEDICATION TAKEN PRIOR TO FIRST DOSE OF ENTRECTINIB.
     Route: 048
     Dates: start: 2017
  2. ENTRECTINIB [Suspect]
     Active Substance: ENTRECTINIB
     Indication: METASTATIC NEOPLASM
     Dosage: DATE OF MOST RECENT DOSE OF ENTRECTINIB PRIOR TO ONSET OF AE: 02/JAN/2020
     Route: 048
     Dates: start: 20180202
  3. VENTOLIN [Concomitant]
     Active Substance: ALBUTEROL SULFATE
     Indication: ASTHMA
     Dosage: TOTAL DOSE: 2 PUFF INHALAR?MEDICATION TAKEN PRIOR TO FIRST DOSE OF ENTRECTINIB.
     Route: 045
     Dates: start: 1998
  4. FLOMAXTRA [Concomitant]
     Active Substance: TAMSULOSIN HYDROCHLORIDE
     Indication: PROSTATOMEGALY
     Dosage: MEDICATION TAKEN PRIOR TO FIRST DOSE OF ENTRECTINIB.
     Route: 048
     Dates: start: 2014
  5. FEXOFENADINE [Concomitant]
     Active Substance: FEXOFENADINE HYDROCHLORIDE
     Indication: SEASONAL ALLERGY
     Dosage: MEDICATION TAKEN PRIOR TO FIRST DOSE OF ENTRECTINIB
     Route: 048
     Dates: start: 201910
  6. FISH OIL [Concomitant]
     Active Substance: FISH OIL
     Indication: NUTRITIONAL SUPPLEMENTATION
     Dosage: MEDICATION NOT TAKEN PRIOR TO FIRST DOSE OF ENTRECTINIB
     Route: 048
     Dates: start: 2017
  7. SERETIDE [Concomitant]
     Active Substance: FLUTICASONE PROPIONATE\SALMETEROL XINAFOATE
     Indication: ASTHMA
     Dosage: TOTAL DOSE: 2 PUFF INHALAR?MEDICATION TAKEN PRIOR TO FIRST DOSE OF ENTRECTINIB.
     Route: 045
     Dates: start: 1998

REACTIONS (2)
  - Pneumonia [Recovered/Resolved]
  - Sepsis [Recovered/Resolved]

NARRATIVE: CASE EVENT DATE: 20200103
